FAERS Safety Report 6580085-7 (Version None)
Quarter: 2010Q1

REPORT INFORMATION
  Report Type: 
  Country: None (occurrence: None)
  Receive Date: 20100212
  Receipt Date: 20100205
  Transmission Date: 20100710
  Serious: Yes (Other)
  Sender: FDA-Public Use
  Company Number: GB-MERCK-0905GBR00024

PATIENT
  Age: 34 Year
  Sex: Female

DRUGS (4)
  1. SINGULAIR [Suspect]
     Indication: ASTHMA
     Route: 048
     Dates: start: 20080201, end: 20090501
  2. FLUTICASONE [Concomitant]
     Route: 065
  3. SALMETEROL [Concomitant]
     Route: 065
  4. ALBUTEROL [Concomitant]
     Route: 065

REACTIONS (4)
  - ADVERSE DRUG REACTION [None]
  - BREECH PRESENTATION [None]
  - DRUG EXPOSURE DURING PREGNANCY [None]
  - H1N1 INFLUENZA [None]
